FAERS Safety Report 24082804 (Version 3)
Quarter: 2024Q3

REPORT INFORMATION
  Report Type: Spontaneous
  Country: US (occurrence: US)
  Receive Date: 20240712
  Receipt Date: 20240718
  Transmission Date: 20241017
  Serious: Yes (Hospitalization, Other)
  Sender: SANOFI AVENTIS
  Company Number: US-SA-SAC20240612000833

PATIENT
  Age: 65 Year
  Sex: Female
  Weight: 82.553 kg

DRUGS (26)
  1. DUPIXENT [Suspect]
     Active Substance: DUPILUMAB
     Indication: Asthma
     Dosage: 300 MG, QOW
     Route: 058
     Dates: start: 201912
  2. ALBUTEROL SULFATE [Concomitant]
     Active Substance: ALBUTEROL SULFATE
  3. TYLENOL EXTRA STRENGTH [Concomitant]
     Active Substance: ACETAMINOPHEN
  4. LIDOCAINE [Concomitant]
     Active Substance: LIDOCAINE
  5. ALBUTEROL SULFATE [Concomitant]
     Active Substance: ALBUTEROL SULFATE
  6. NISOLDIPINE [Concomitant]
     Active Substance: NISOLDIPINE
     Dosage: UNK
  7. ONDANSETRON HYDROCHLORIDE [Concomitant]
     Active Substance: ONDANSETRON HYDROCHLORIDE
  8. SAXENDA [Concomitant]
     Active Substance: LIRAGLUTIDE
  9. SYMBICORT [Concomitant]
     Active Substance: BUDESONIDE\FORMOTEROL FUMARATE DIHYDRATE
  10. TRAZODONE HCL [Concomitant]
     Active Substance: TRAZODONE HYDROCHLORIDE
  11. TRETINOIN [Concomitant]
     Active Substance: TRETINOIN
  12. CLONAZEPAM [Concomitant]
     Active Substance: CLONAZEPAM
  13. ALBUTEROL\IPRATROPIUM [Concomitant]
     Active Substance: ALBUTEROL\IPRATROPIUM
  14. ALAVERT ALLERGY [Concomitant]
     Active Substance: LORATADINE
  15. ALEVE [Concomitant]
     Active Substance: NAPROXEN SODIUM
  16. INCRUSE ELLIPTA [Concomitant]
     Active Substance: UMECLIDINIUM BROMIDE
  17. AZELASTINE HYDROCHLORIDE [Concomitant]
     Active Substance: AZELASTINE HYDROCHLORIDE
  18. PLAQUENIL [Concomitant]
     Active Substance: HYDROXYCHLOROQUINE SULFATE
  19. PRAMIPEXOLE DIHYDROCHLORIDE [Concomitant]
     Active Substance: PRAMIPEXOLE DIHYDROCHLORIDE
  20. MUCINEX [Concomitant]
     Active Substance: GUAIFENESIN
  21. SINGULAIR [Concomitant]
     Active Substance: MONTELUKAST SODIUM
  22. CYMBALTA [Concomitant]
     Active Substance: DULOXETINE HYDROCHLORIDE
  23. EPIDIOLEX [Concomitant]
     Active Substance: CANNABIDIOL
  24. DICLOFENAC [Concomitant]
     Active Substance: DICLOFENAC
  25. ZOSTRIX HP [Concomitant]
     Active Substance: CAPSAICIN
  26. SODIUM CHLORIDE [Concomitant]
     Active Substance: SODIUM CHLORIDE

REACTIONS (3)
  - Hospitalisation [Unknown]
  - Tracheomalacia [Unknown]
  - Product storage error [Unknown]

NARRATIVE: CASE EVENT DATE: 20240301
